FAERS Safety Report 8949492 (Version 2)
Quarter: 2012Q4

REPORT INFORMATION
  Report Type: 
  Country: US (occurrence: US)
  Receive Date: 20121206
  Receipt Date: 20121219
  Transmission Date: 20130627
  Serious: Yes (Other)
  Sender: FDA-Public Use
  Company Number: US-FRI-1000040833

PATIENT
  Age: 65 Year
  Sex: Male
  Weight: 62.3 kg

DRUGS (3)
  1. BYSTOLIC [Suspect]
     Indication: HYPERTENSION
     Dosage: 20MG
     Route: 048
     Dates: start: 20120703, end: 20120830
  2. VYTORIN [Concomitant]
     Indication: BLOOD CHOLESTEROL INCREASED
     Dosage: 10/80MG DAILY
  3. ASPIRIN [Concomitant]
     Indication: ANTICOAGULANT THERAPY
     Dosage: 81MG

REACTIONS (1)
  - Hypotension [Recovered/Resolved]
